FAERS Safety Report 22937780 (Version 5)
Quarter: 2024Q2

REPORT INFORMATION
  Report Type: Report from Study
  Country: US (occurrence: US)
  Receive Date: 20230913
  Receipt Date: 20240510
  Transmission Date: 20240715
  Serious: Yes (Hospitalization, Other)
  Sender: FDA-Public Use
  Company Number: US-SANDOZ-SDZ2023US002895

PATIENT
  Sex: Female
  Weight: 48.526 kg

DRUGS (4)
  1. TREPROSTINIL [Suspect]
     Active Substance: TREPROSTINIL
     Dosage: 15 NG/KG/ MI N
     Route: 042
     Dates: start: 20220923
  2. TREPROSTINIL [Suspect]
     Active Substance: TREPROSTINIL
     Dosage: UNK
     Route: 065
  3. TREPROSTINIL [Suspect]
     Active Substance: TREPROSTINIL
     Indication: Pulmonary arterial hypertension
     Dosage: 15 NG/KG/MIN CONTINUOUS
     Route: 042
     Dates: start: 20220923
  4. TREPROSTINIL [Suspect]
     Active Substance: TREPROSTINIL
     Dosage: 15 NG/KG/MIN, CONT
     Route: 042
     Dates: start: 20220923

REACTIONS (7)
  - Pneumonia [Unknown]
  - Parainfluenzae virus infection [Unknown]
  - Urinary tract infection [Unknown]
  - Confusional state [Unknown]
  - Intracardiac pressure increased [Unknown]
  - Hypervolaemia [Unknown]
  - Ulcer [Unknown]
